FAERS Safety Report 7705459 (Version 3)
Quarter: 2012Q4

REPORT INFORMATION
  Report Type: 
  Country: US (occurrence: US)
  Receive Date: 20101213
  Receipt Date: 20121028
  Transmission Date: 20130627
  Serious: Yes (Hospitalization, Other)
  Sender: FDA-Public Use
  Company Number: US-US-EMD SERONO, INC.-7031104

PATIENT
  Age: 27 None
  Sex: Female
  Weight: 58 kg

DRUGS (11)
  1. REBIF [Suspect]
     Indication: MULTIPLE SCLEROSIS
     Route: 058
     Dates: start: 20060711, end: 20081210
  2. REBIF [Suspect]
     Route: 058
     Dates: start: 20090615, end: 20111019
  3. IBUPROFEN [Concomitant]
     Indication: PAIN
     Route: 048
     Dates: start: 200812
  4. ALBUTEROL [Concomitant]
     Indication: ASTHMA
     Route: 055
     Dates: start: 200906
  5. ESTRADIOL [Concomitant]
     Indication: HOT FLUSH
     Route: 048
     Dates: start: 200812
  6. RANITIDINE [Concomitant]
     Indication: GASTROOESOPHAGEAL REFLUX DISEASE
     Route: 048
     Dates: start: 20101101
  7. GABAPENTIN [Concomitant]
     Indication: PAIN
     Route: 048
     Dates: start: 20101101
  8. ALPRAZOLAM [Concomitant]
     Indication: ANXIETY
     Route: 048
  9. VICODIN [Concomitant]
     Indication: PAIN
     Route: 048
     Dates: start: 20101101
  10. SERTRALINE [Concomitant]
     Indication: DEPRESSION
     Route: 048
     Dates: start: 20101101
  11. TRAZODONE [Concomitant]
     Indication: INSOMNIA
     Route: 048
     Dates: start: 20101101

REACTIONS (8)
  - Hepatic cirrhosis [Unknown]
  - Hepatic steatosis [Unknown]
  - Anxiety [Recovered/Resolved]
  - Cyst [Unknown]
  - Blood glucose increased [Unknown]
  - Liver function test abnormal [Not Recovered/Not Resolved]
  - Multiple sclerosis relapse [Recovered/Resolved]
  - Depression [Recovered/Resolved]
